FAERS Safety Report 21251313 (Version 1)
Quarter: 2022Q3

REPORT INFORMATION
  Report Type: Report from Study
  Country: NL (occurrence: NL)
  Receive Date: 20220825
  Receipt Date: 20220825
  Transmission Date: 20221026
  Serious: Yes (Hospitalization, Other)
  Sender: FDA-Public Use
  Company Number: NL-SUN PHARMACEUTICAL INDUSTRIES LTD-2022RR-351670

PATIENT
  Age: 20 Year
  Sex: Male

DRUGS (2)
  1. PREGABALIN [Suspect]
     Active Substance: PREGABALIN
     Indication: Product used for unknown indication
     Dosage: 2700 MG OF PREGABALIN IN A SPAN OF 4 H
     Route: 065
  2. PREGABALIN [Suspect]
     Active Substance: PREGABALIN
     Dosage: 37.0 MILLIGRAM/KILOGRAM, UNK
     Route: 065

REACTIONS (4)
  - Intentional overdose [Unknown]
  - Hypertension [Unknown]
  - Somnolence [Unknown]
  - Hyperthermia [Unknown]
